FAERS Safety Report 7803895-4 (Version None)
Quarter: 2011Q4

REPORT INFORMATION
  Report Type: 
  Country: None (occurrence: None)
  Receive Date: 20111010
  Receipt Date: 20111007
  Transmission Date: 20120403
  Serious: Yes (Other)
  Sender: FDA-Public Use
  Company Number: NO-PFIZER INC-2011239633

PATIENT
  Age: 47 Year
  Sex: Male

DRUGS (3)
  1. VARENICLINE TARTRATE [Suspect]
     Route: 048
     Dates: start: 20110101, end: 20110101
  2. VALIUM [Concomitant]
  3. VARENICLINE TARTRATE [Suspect]
     Indication: SMOKING CESSATION THERAPY
     Dosage: UNK
     Route: 048
     Dates: start: 20080101, end: 20080101

REACTIONS (7)
  - ABNORMAL BEHAVIOUR [None]
  - CHEST PAIN [None]
  - IRRITABILITY [None]
  - NIGHTMARE [None]
  - HEADACHE [None]
  - HOMICIDAL IDEATION [None]
  - NIGHT SWEATS [None]
